FAERS Safety Report 6744718 (Version 2)
Quarter: 2013Q1

REPORT INFORMATION
  Report Type: Spontaneous
  Country: ES (occurrence: ES)
  Receive Date: 20080902
  Receipt Date: 20130312
  Transmission Date: 20140127
  Serious: Yes (Death, Hospitalization)
  Sender: FDA-Public Use
  Company Number: ES-ELI_LILLY_AND_COMPANY-ES200808003748

PATIENT
  Age: 72 Year
  Sex: Male

DRUGS (5)
  1. FORSTEO [Suspect]
     Indication: OSTEOPOROSIS
     Dosage: 20 UG, UNKNOWN
     Route: 058
     Dates: start: 200804
  2. CORTISONE [Concomitant]
     Dosage: UNK, UNKNOWN
     Route: 065
  3. DEPRANCOL [Concomitant]
     Dosage: UNK, UNKNOWN
     Route: 065
  4. NATECAL [Concomitant]
     Dosage: UNK, UNKNOWN
     Route: 065
  5. EFORTIL [Concomitant]
     Dosage: UNK, UNKNOWN
     Route: 065

REACTIONS (1)
  - Emphysema [Fatal]
